FAERS Safety Report 8012006-4 (Version None)
Quarter: 2011Q4

REPORT INFORMATION
  Report Type: 
  Country: None (occurrence: None)
  Receive Date: 20111228
  Receipt Date: 20111219
  Transmission Date: 20120403
  Serious: Yes (Other)
  Sender: FDA-Public Use
  Company Number: JP-GLAXOSMITHKLINE-B0764956A

PATIENT
  Sex: Male

DRUGS (7)
  1. PAXIL [Concomitant]
     Dosage: 30MG PER DAY
     Route: 048
     Dates: start: 20100928
  2. LAMICTAL [Suspect]
     Indication: BIPOLAR DISORDER
     Dosage: 25MG PER DAY
     Route: 048
     Dates: start: 20111026, end: 20111108
  3. DEPAS [Concomitant]
     Indication: INSOMNIA
     Dosage: 1MG PER DAY
     Route: 048
     Dates: start: 20110629
  4. AMOBAN [Concomitant]
     Indication: INSOMNIA
     Dosage: 10MG PER DAY
     Route: 048
     Dates: start: 20111003
  5. SEROQUEL [Concomitant]
     Dates: end: 20110730
  6. LAMICTAL [Suspect]
     Dosage: 50MG PER DAY
     Route: 048
     Dates: start: 20111109, end: 20111111
  7. LITHIUM CARBONATE [Concomitant]
     Dosage: 400MG PER DAY
     Dates: end: 20110730

REACTIONS (3)
  - RASH [None]
  - APHAGIA [None]
  - ORAL MUCOSA EROSION [None]
